FAERS Safety Report 7090234-2 (Version None)
Quarter: 2010Q4

REPORT INFORMATION
  Report Type: 
  Country: None (occurrence: None)
  Receive Date: 20101109
  Receipt Date: 20101102
  Transmission Date: 20110411
  Serious: Yes (Death, Hospitalization, Other)
  Sender: FDA-Public Use
  Company Number: US-CELGENEUS-163-21880-10091980

PATIENT
  Sex: Female

DRUGS (13)
  1. REVLIMID [Suspect]
     Indication: MYELODYSPLASTIC SYNDROME
     Route: 048
     Dates: start: 20100701, end: 20100901
  2. PROTONIX [Concomitant]
     Route: 051
     Dates: start: 20100901
  3. PROTONIX [Concomitant]
     Route: 041
     Dates: start: 20100901
  4. PROTONIX [Concomitant]
     Route: 048
     Dates: start: 20100901
  5. RED BLOOD CELLS [Concomitant]
     Route: 051
     Dates: start: 20100901
  6. PLATELETS [Concomitant]
     Indication: THROMBOCYTOPENIA
     Route: 051
     Dates: start: 20100901
  7. MORPHINE [Concomitant]
     Indication: DISCOMFORT
     Route: 051
     Dates: start: 20100901
  8. ADVAIR DISKUS 100/50 [Concomitant]
     Dosage: 250/50
     Route: 055
     Dates: start: 20100901
  9. TYLENOL [Concomitant]
     Indication: PAIN
     Route: 048
     Dates: start: 20100901
  10. NORCO [Concomitant]
     Indication: PAIN
     Dosage: 5/325 MG
     Route: 048
     Dates: start: 20100901
  11. XANAX [Concomitant]
     Indication: ANXIETY
     Route: 065
     Dates: start: 20100901
  12. NORMAL SALINE [Concomitant]
     Route: 040
     Dates: start: 20100901
  13. OXYGEN [Concomitant]
     Route: 055
     Dates: start: 20100901

REACTIONS (5)
  - ATRIAL FIBRILLATION [None]
  - GASTROINTESTINAL HAEMORRHAGE [None]
  - HAEMATOMA [None]
  - SEPSIS [None]
  - URINARY TRACT INFECTION [None]
